FAERS Safety Report 16797110 (Version 2)
Quarter: 2019Q4

REPORT INFORMATION
  Report Type: Spontaneous
  Country: DE (occurrence: DE)
  Receive Date: 20190911
  Receipt Date: 20191216
  Transmission Date: 20200122
  Serious: Yes (Other)
  Sender: FDA-Public Use
  Company Number: PHHY2019DE206894

PATIENT
  Age: 77 Year
  Sex: Female

DRUGS (8)
  1. PREDNISOLONE. [Suspect]
     Active Substance: PREDNISOLONE
     Indication: EYE INFLAMMATION
     Dosage: UNK
     Route: 065
     Dates: start: 2019
  2. ARTELAC [HYPROMELLOSE] [Suspect]
     Active Substance: HYPROMELLOSES
     Indication: PRODUCT USED FOR UNKNOWN INDICATION
     Dosage: UNK
     Route: 065
     Dates: start: 2019
  3. BEPANTHEN [DEXPANTHENOL] [Suspect]
     Active Substance: DEXPANTHENOL
     Indication: PRODUCT USED FOR UNKNOWN INDICATION
     Dosage: UNK
     Route: 065
     Dates: start: 2019
  4. EFEROX [Concomitant]
     Active Substance: LEVOTHYROXINE SODIUM
     Indication: HYPOTHYROIDISM
     Dosage: UNK
     Route: 065
  5. THEALOZ [Suspect]
     Active Substance: TREHALOSE
     Indication: PRODUCT USED FOR UNKNOWN INDICATION
     Dosage: UNK
     Route: 065
     Dates: start: 2019
  6. OFLOXACIN. [Suspect]
     Active Substance: OFLOXACIN
     Indication: EYE INFLAMMATION
     Dosage: UNK
     Route: 065
     Dates: start: 201901
  7. SYSTANE (HYPROMELLOSE 2910 (4000 MPA.S)) [Suspect]
     Active Substance: HYPROMELLOSE 2910 (4000 MPA.S)
     Indication: PRODUCT USED FOR UNKNOWN INDICATION
     Dosage: UNK
     Route: 065
     Dates: start: 2019
  8. OFLOXACIN. [Suspect]
     Active Substance: OFLOXACIN
     Indication: PREOPERATIVE CARE

REACTIONS (13)
  - Pulmonary congestion [Unknown]
  - Dry eye [Unknown]
  - Eye irritation [Unknown]
  - Lacrimation increased [Unknown]
  - Skin disorder [Unknown]
  - Headache [Unknown]
  - Rhinitis [Unknown]
  - Contraindicated product administered [Unknown]
  - Pruritus [Unknown]
  - Arthropathy [Unknown]
  - Nasopharyngitis [Unknown]
  - Sensation of foreign body [Unknown]
  - Eye inflammation [Not Recovered/Not Resolved]

NARRATIVE: CASE EVENT DATE: 2019
